FAERS Safety Report 9771765 (Version 3)
Quarter: 2014Q1

REPORT INFORMATION
  Report Type: Report from Study
  Country: US (occurrence: US)
  Receive Date: 20131219
  Receipt Date: 20140130
  Transmission Date: 20141002
  Serious: Yes (Hospitalization, Other)
  Sender: FDA-Public Use
  Company Number: US-ROCHE-1322473

PATIENT
  Age: 69 Year
  Sex: Female

DRUGS (2)
  1. LUCENTIS [Suspect]
     Indication: PRODUCT USED FOR UNKNOWN INDICATION
     Dosage: LAST DOSE ON 02/JUL/2013, OD
     Route: 031
     Dates: start: 2009
  2. WARFARIN [Concomitant]

REACTIONS (3)
  - Pneumonia [Unknown]
  - Thrombosis [Unknown]
  - Thrombosis [Unknown]
